FAERS Safety Report 9174801 (Version 1)
Quarter: 2013Q1

REPORT INFORMATION
  Report Type: Spontaneous
  Country: IT (occurrence: None)
  Receive Date: 20130318
  Receipt Date: 20130318
  Transmission Date: 20140127
  Serious: No
  Sender: FDA-Public Use
  Company Number: 1303ITA006466

PATIENT
  Sex: 0

DRUGS (3)
  1. ISOCEF [Suspect]
     Route: 048
     Dates: start: 20121217, end: 20121219
  2. BRUFEN [Suspect]
     Route: 048
     Dates: start: 20121217, end: 20121219
  3. LANSOX [Suspect]
     Route: 048
     Dates: start: 20121217, end: 20121219

REACTIONS (3)
  - Urticaria papular [None]
  - Palatal oedema [None]
  - Pruritus [None]
